FAERS Safety Report 8807303 (Version 1)
Quarter: 2012Q4

REPORT INFORMATION
  Report Type: 
  Country: US (occurrence: US)
  Receive Date: 20120925
  Receipt Date: 20120925
  Transmission Date: 20130627
  Serious: No
  Sender: FDA-Public Use
  Company Number: US-ASTRAZENECA-2012SE71759

PATIENT
  Age: 50 Year
  Sex: Female
  Weight: 89.8 kg

DRUGS (15)
  1. NEXIUM [Suspect]
     Indication: GASTROOESOPHAGEAL REFLUX DISEASE
     Route: 048
     Dates: end: 2007
  2. NEXIUM [Suspect]
     Indication: PROPHYLAXIS AGAINST GASTROINTESTINAL ULCER
     Route: 048
     Dates: end: 2007
  3. NEXIUM [Suspect]
     Indication: GASTROOESOPHAGEAL REFLUX DISEASE
     Route: 048
     Dates: start: 2007
  4. NEXIUM [Suspect]
     Indication: PROPHYLAXIS AGAINST GASTROINTESTINAL ULCER
     Route: 048
     Dates: start: 2007
  5. ARTHRITIS MEDICATION [Concomitant]
     Indication: ARTHRITIS
  6. TEGRETOL [Concomitant]
     Indication: TREMOR
  7. NEURONTIN [Concomitant]
     Indication: FIBROMYALGIA
  8. FLEXORIL [Concomitant]
     Indication: MUSCLE SPASMS
  9. PROZAC [Concomitant]
     Indication: DEPRESSION
  10. ZOCOR [Concomitant]
     Indication: BLOOD CHOLESTEROL INCREASED
  11. MULTIVITAMIN [Concomitant]
     Indication: MEDICAL DIET
  12. FISH OIL WITH VITAMIN D [Concomitant]
     Indication: MEDICAL DIET
  13. CALCIUM [Concomitant]
     Indication: MEDICAL DIET
  14. CO Q 10 [Concomitant]
     Indication: MEDICAL DIET
  15. B12 [Concomitant]
     Indication: MEDICAL DIET

REACTIONS (6)
  - Fibromyalgia [Unknown]
  - Throat irritation [Unknown]
  - Regurgitation [Unknown]
  - Bacterial infection [Unknown]
  - Weight decreased [Unknown]
  - Oropharyngeal pain [Unknown]
